FAERS Safety Report 7487241-4 (Version None)
Quarter: 2011Q2

REPORT INFORMATION
  Report Type: 
  Country: None (occurrence: None)
  Receive Date: 20110510
  Receipt Date: 20110505
  Transmission Date: 20111010
  Serious: Yes (Other)
  Sender: FDA-Public Use
  Company Number: USA/USA/11/0018225

PATIENT
  Sex: Female
  Weight: 61.2356 kg

DRUGS (3)
  1. SINGULAIR [Concomitant]
  2. FEXOFENADINE HCL [Suspect]
     Indication: HYPERSENSITIVITY
     Dosage: 180 MG, 1 TABLET EVERY MORNING, ORAL
     Route: 048
     Dates: start: 20110401, end: 20110503
  3. XOPENEX INHALER (LEVOSALBUTAMOL) [Concomitant]

REACTIONS (5)
  - ASTHMA [None]
  - MUSCLE SPASMS [None]
  - ABDOMINAL DISTENSION [None]
  - MYALGIA [None]
  - FATIGUE [None]
